FAERS Safety Report 16707813 (Version 2)
Quarter: 2019Q3

REPORT INFORMATION
  Report Type: Report from Study
  Country: US (occurrence: US)
  Receive Date: 20190815
  Receipt Date: 20190819
  Transmission Date: 20191004
  Serious: Yes (Hospitalization)
  Sender: FDA-Public Use
  Company Number: US-PFIZER INC-2019343812

PATIENT
  Age: 49 Year
  Sex: Female

DRUGS (15)
  1. ALEVE [Concomitant]
     Active Substance: NAPROXEN SODIUM
     Indication: ARTHRALGIA
  2. CEPHALEXIN [CEFALEXIN] [Concomitant]
     Active Substance: CEPHALEXIN
     Indication: INFECTION
     Dosage: 500 MG, FOUR TIMES DAILY
     Route: 048
     Dates: start: 20190713, end: 20190801
  3. PROAIR HFA [Concomitant]
     Active Substance: ALBUTEROL SULFATE
     Indication: ASTHMA
     Dosage: 90 MCG, AS NEEDED
     Route: 055
     Dates: start: 20180906
  4. NO SUBJECT DRUG [Suspect]
     Active Substance: UNSPECIFIED INGREDIENT
     Dosage: NO DOSE GIVEN
  5. EXEMESTANE. [Suspect]
     Active Substance: EXEMESTANE
     Indication: BREAST CANCER
     Dosage: 25 MG, QD
     Route: 048
     Dates: start: 20190315
  6. ERGOCALCIFEROL. [Concomitant]
     Active Substance: ERGOCALCIFEROL
     Indication: VITAMIN D DEFICIENCY
     Dosage: 2000 IU, DAILY
     Route: 048
     Dates: start: 20180330
  7. MOTRIN [NAPROXEN] [Concomitant]
     Active Substance: NAPROXEN
     Indication: MYALGIA
     Dosage: 200 MG, AS NEEDED
     Route: 048
     Dates: start: 20181016
  8. AMITRIPTYLINE [Concomitant]
     Active Substance: AMITRIPTYLINE
     Indication: MIGRAINE
     Dosage: 25 MG, 3X/DAY
     Route: 048
     Dates: start: 20180822
  9. ZOLMITRIPTAN. [Concomitant]
     Active Substance: ZOLMITRIPTAN
     Indication: MIGRAINE
     Dosage: 5 MG, AS NEEDED
     Route: 048
     Dates: start: 20170802
  10. RANITIDINE. [Concomitant]
     Active Substance: RANITIDINE
     Indication: GASTROOESOPHAGEAL REFLUX DISEASE
     Dosage: 75 MG, AS NEEDED
     Route: 048
     Dates: start: 20171016
  11. ALEVE [Concomitant]
     Active Substance: NAPROXEN SODIUM
     Indication: MYALGIA
     Dosage: 220 MG, AS NEEDED
     Route: 048
     Dates: start: 20181016
  12. LOPERAMIDE [Concomitant]
     Active Substance: LOPERAMIDE
     Indication: DIARRHOEA
     Dosage: 2 MG, AS NEEDED
     Route: 048
     Dates: start: 20180122
  13. MOTRIN [NAPROXEN] [Concomitant]
     Active Substance: NAPROXEN
     Indication: ARTHRALGIA
  14. FLUTICASONE/SALMETEROL [Concomitant]
     Indication: COUGH
     Dosage: [FLUTICASONE 250MCG]/[SALMETEROL 50MCG], TWICE DAILY
     Route: 055
     Dates: start: 20180906
  15. LORATADINE. [Concomitant]
     Active Substance: LORATADINE
     Indication: HYPERSENSITIVITY
     Dosage: 10 MG, AS NEEDED
     Route: 048
     Dates: start: 20171006

REACTIONS (6)
  - Seroma [Recovered/Resolved]
  - Breast cellulitis [Recovered/Resolved]
  - Stress cardiomyopathy [Recovered/Resolved]
  - Splenic infarction [Recovered/Resolved]
  - Pyrexia [Recovered/Resolved]
  - Cardiac ventricular thrombosis [Recovered/Resolved]

NARRATIVE: CASE EVENT DATE: 20190711
